FAERS Safety Report 25184441 (Version 1)
Quarter: 2025Q2

REPORT INFORMATION
  Report Type: Spontaneous
  Country: US (occurrence: None)
  Receive Date: 20250409
  Receipt Date: 20250409
  Transmission Date: 20250716
  Serious: No
  Sender: FDA-CTU
  Company Number: None

PATIENT
  Age: 79 Year
  Sex: Male
  Weight: 76 kg

DRUGS (1)
  1. DIGOXIN [Suspect]
     Active Substance: DIGOXIN
     Indication: Atrial fibrillation
     Dosage: FREQUENCY : DAILY;?
     Route: 048
     Dates: end: 20250123

REACTIONS (14)
  - Arrhythmia [None]
  - Headache [None]
  - Sedation [None]
  - Hypotension [None]
  - Pyelonephritis [None]
  - Acute kidney injury [None]
  - Cystitis haemorrhagic [None]
  - Mental status changes [None]
  - Lethargy [None]
  - Haematuria [None]
  - Oropharyngeal pain [None]
  - Decreased appetite [None]
  - Toxicity to various agents [None]
  - Metabolic acidosis [None]

NARRATIVE: CASE EVENT DATE: 20250123
